FAERS Safety Report 5130815-6 (Version None)
Quarter: 2006Q4

REPORT INFORMATION
  Report Type: 
  Country: None (occurrence: None)
  Receive Date: 20061017
  Receipt Date: 20061017
  Transmission Date: 20070319
  Serious: Yes (Hospitalization)
  Sender: FDA-Public Use
  Company Number: None

PATIENT
  Age: 69 Year
  Sex: Male
  Weight: 136.5327 kg

DRUGS (1)
  1. AUGMENTIN '125' [Suspect]
     Indication: CELLULITIS
     Dosage: 875MG/125MG PO BID
     Route: 048
     Dates: start: 20060522, end: 20060602

REACTIONS (1)
  - DRUG HYPERSENSITIVITY [None]
